FAERS Safety Report 14609682 (Version 1)
Quarter: 2018Q1

REPORT INFORMATION
  Report Type: Report from Study
  Country: NL (occurrence: NL)
  Receive Date: 20180307
  Receipt Date: 20180307
  Transmission Date: 20180509
  Serious: Yes (Hospitalization)
  Sender: FDA-Public Use
  Company Number: PHHY2018NL035949

PATIENT
  Age: 70 Year
  Sex: Male

DRUGS (1)
  1. ZOMETA [Suspect]
     Active Substance: ZOLEDRONIC ACID
     Indication: PROSTATE CANCER
     Dosage: 4MG/100ML 1X6WEEKS
     Route: 042
     Dates: start: 20150813

REACTIONS (2)
  - Inappropriate schedule of drug administration [Unknown]
  - Kidney congestion [Unknown]

NARRATIVE: CASE EVENT DATE: 20180301
